FAERS Safety Report 6839027-9 (Version None)
Quarter: 2010Q3

REPORT INFORMATION
  Report Type: 
  Country: None (occurrence: None)
  Receive Date: 20100714
  Receipt Date: 20100702
  Transmission Date: 20110219
  Serious: Yes (Life-Threatening, Hospitalization)
  Sender: FDA-Public Use
  Company Number: FR-BRISTOL-MYERS SQUIBB COMPANY-15186182

PATIENT
  Age: 67 Year
  Sex: Male

DRUGS (2)
  1. GLUCOPHAGE [Suspect]
     Indication: TYPE 2 DIABETES MELLITUS
     Dosage: COATED TAB INTERRUPTED ON 19JUN2010(4D) RESTARTED ON UNK DATE
     Route: 048
     Dates: start: 20100615
  2. TRIATEC [Suspect]
     Indication: HYPERTENSION
     Dosage: 10 MG TABS
     Route: 048
     Dates: start: 20100616, end: 20100619

REACTIONS (3)
  - ANGIOEDEMA [None]
  - DYSPHAGIA [None]
  - DYSPHONIA [None]
